FAERS Safety Report 16115608 (Version 2)
Quarter: 2019Q2

REPORT INFORMATION
  Report Type: Report from Study
  Country: None (occurrence: BE)
  Receive Date: 20190325
  Receipt Date: 20190418
  Transmission Date: 20190711
  Serious: Yes (Hospitalization)
  Sender: FDA-Public Use
  Company Number: BE-ABBVIE-19P-013-2707263-00

PATIENT
  Age: 84 Year
  Sex: Female
  Weight: 58 kg

DRUGS (12)
  1. ASAFLOW [Concomitant]
     Active Substance: ASPIRIN
     Indication: ATRIAL FIBRILLATION
     Route: 048
     Dates: start: 20170927
  2. DUODOPA [Suspect]
     Active Substance: CARBIDOPA\LEVODOPA
     Dosage: MD 12 ML, CD 3 ML
     Route: 050
     Dates: start: 20161212, end: 20190315
  3. PROLOPA HBS [Concomitant]
     Active Substance: BENSERAZIDE\LEVODOPA
     Indication: PARKINSON^S DISEASE
     Route: 048
     Dates: start: 20110822
  4. TOTALIP [Concomitant]
     Active Substance: ATORVASTATIN
     Indication: HYPERLIPIDAEMIA
     Route: 048
     Dates: start: 20110422
  5. DAFALGAN [Concomitant]
     Active Substance: ACETAMINOPHEN
     Route: 042
     Dates: start: 2015
  6. DUODOPA [Suspect]
     Active Substance: CARBIDOPA\LEVODOPA
     Dosage: MD 12 ML, CD 3 ML
     Route: 050
     Dates: start: 20190319
  7. PROLOPA [Concomitant]
     Active Substance: BENSERAZIDE\LEVODOPA
     Indication: PARKINSON^S DISEASE
     Route: 048
     Dates: start: 20110822, end: 20161213
  8. DAFALGAN [Concomitant]
     Active Substance: ACETAMINOPHEN
     Indication: BACK PAIN
     Route: 042
     Dates: start: 20170819, end: 20170824
  9. MELATONINE [Concomitant]
     Active Substance: MELATONIN
     Indication: INSOMNIA
     Route: 048
     Dates: start: 20170324
  10. PROLOPA [Concomitant]
     Active Substance: BENSERAZIDE\LEVODOPA
     Dosage: 1 AT 5 AM IF NECCESSARY
     Route: 048
     Dates: start: 20161213
  11. SIPRALEXA [Concomitant]
     Active Substance: ESCITALOPRAM OXALATE
     Indication: DEPRESSION
     Route: 048
     Dates: start: 20111114
  12. DUODOPA [Suspect]
     Active Substance: CARBIDOPA\LEVODOPA
     Indication: PARKINSON^S DISEASE
     Dosage: TITRATION:MD 12.ML; CD: 3.5ML/HR; ED: 1.5ML
     Route: 050
     Dates: start: 20160926, end: 20160929

REACTIONS (2)
  - Device dislocation [Recovered/Resolved]
  - Stoma site discharge [Unknown]

NARRATIVE: CASE EVENT DATE: 20190205
